FAERS Safety Report 26091957 (Version 1)
Quarter: 2025Q4

REPORT INFORMATION
  Report Type: Spontaneous
  Country: US (occurrence: None)
  Receive Date: 20251125
  Receipt Date: 20251125
  Transmission Date: 20260118
  Serious: Yes (Hospitalization)
  Sender: FDA-CTU
  Company Number: None

PATIENT
  Age: 64 Year
  Sex: Male

DRUGS (6)
  1. MEKTOVI [Suspect]
     Active Substance: BINIMETINIB
     Indication: Metastases to central nervous system
     Dosage: TAKE 3 TABLETS BY MOUTH 2 TIMES DAILY.?
     Route: 048
  2. BRAFTOV CAP 75MG [Concomitant]
  3. FAMOTIDINE [Concomitant]
     Active Substance: FAMOTIDINE
  4. LOPERAMIDE CAP 2MG [Concomitant]
  5. ONDANSETRON TAB 8MG ODT [Concomitant]
  6. UREA POW [Concomitant]

REACTIONS (2)
  - Product dose omission issue [None]
  - Product use complaint [None]

NARRATIVE: CASE EVENT DATE: 20250902
